FAERS Safety Report 7010342-1 (Version None)
Quarter: 2010Q3

REPORT INFORMATION
  Report Type: 
  Country: None (occurrence: None)
  Receive Date: 20100923
  Receipt Date: 20100920
  Transmission Date: 20110219
  Serious: Yes (Hospitalization)
  Sender: FDA-Public Use
  Company Number: DE-WYE-G06697010

PATIENT
  Age: 77 Year
  Sex: Male

DRUGS (2)
  1. TORISEL [Suspect]
     Indication: MANTLE CELL LYMPHOMA
     Dosage: 175 MG EVERY 1 TOT
     Route: 042
     Dates: start: 20100901, end: 20100901
  2. TORISEL [Suspect]
     Indication: RENAL CELL CARCINOMA

REACTIONS (3)
  - LEUKOPENIA [None]
  - THROMBOCYTOPENIA [None]
  - TONSILLITIS [None]
